FAERS Safety Report 9707917 (Version 2)
Quarter: 2013Q4

REPORT INFORMATION
  Report Type: Spontaneous
  Country: US (occurrence: US)
  Receive Date: 20131125
  Receipt Date: 20131125
  Transmission Date: 20140711
  Serious: No
  Sender: FDA-Public Use
  Company Number: US-TEVA-330807USA

PATIENT
  Sex: Female
  Weight: 76.73 kg

DRUGS (4)
  1. PARAGARD 380A [Suspect]
     Indication: CONTRACEPTION
     Route: 015
     Dates: start: 20111012, end: 20120323
  2. PRENATAL VITAMINS                  /01549301/ [Concomitant]
  3. MACRODANTIN [Concomitant]
     Dosage: QD
     Route: 048
  4. FIORICET [Concomitant]
     Dosage: 1-2 Q F HOURS PRN
     Route: 048

REACTIONS (2)
  - Pregnancy with contraceptive device [Recovered/Resolved]
  - Drug ineffective [Unknown]
